FAERS Safety Report 15905641 (Version 2)
Quarter: 2020Q4

REPORT INFORMATION
  Report Type: Spontaneous
  Country: US (occurrence: US)
  Receive Date: 20190204
  Receipt Date: 20201207
  Transmission Date: 20210113
  Serious: No
  Sender: FDA-Public Use
  Company Number: US-AMGEN-USASP2019014550

PATIENT
  Age: 71 Year
  Sex: Female

DRUGS (1)
  1. PROLIA [Suspect]
     Active Substance: DENOSUMAB
     Indication: OSTEOPOROSIS POSTMENOPAUSAL
     Dosage: UNK
     Route: 065

REACTIONS (13)
  - Asthenia [Unknown]
  - Nail disorder [Unknown]
  - Blood calcium increased [Unknown]
  - Gingival bleeding [Recovered/Resolved]
  - Mouth ulceration [Recovered/Resolved]
  - Therapeutic product effect incomplete [Unknown]
  - Onychoclasis [Unknown]
  - Back pain [Unknown]
  - Pain in extremity [Unknown]
  - Blood parathyroid hormone increased [Unknown]
  - Dental caries [Unknown]
  - Alopecia [Not Recovered/Not Resolved]
  - Fatigue [Unknown]
